FAERS Safety Report 8244640-0 (Version None)
Quarter: 2012Q1

REPORT INFORMATION
  Report Type: 
  Country: None (occurrence: None)
  Receive Date: 20120329
  Receipt Date: 20120309
  Transmission Date: 20120608
  Serious: No
  Sender: FDA-Public Use
  Company Number: US-MYLANLABS-2011S1024562

PATIENT
  Age: 54 Year
  Sex: Female
  Weight: 104.33 kg

DRUGS (22)
  1. PILOCARPINE [Concomitant]
     Indication: ASTHENOPIA
     Route: 047
  2. FENTANYL-100 [Suspect]
     Indication: FIBROMYALGIA
     Dosage: CHANGE Q48HR
     Route: 062
     Dates: start: 20100101
  3. JANUVIA [Concomitant]
     Route: 048
  4. FENTANYL-100 [Suspect]
     Indication: RHEUMATOID ARTHRITIS
     Dosage: CHANGE Q48HR
     Route: 062
     Dates: start: 20100101
  5. FENTANYL-100 [Suspect]
     Indication: SPINAL COLUMN STENOSIS
     Dosage: CHANGE Q48HR
     Route: 062
     Dates: start: 20100101
  6. FUROSEMIDE [Concomitant]
     Indication: OEDEMA
     Route: 048
  7. MIDODRINE HYDROCHLORIDE [Concomitant]
     Indication: SYNCOPE
     Dosage: 2-3 DAILY
     Route: 048
  8. LEVOTHYROXINE SODIUM [Concomitant]
     Indication: THYROID DISORDER
     Route: 048
  9. POTASSIUM CHLORIDE [Concomitant]
     Indication: OEDEMA
     Route: 048
  10. PROMETHAZINE [Concomitant]
     Indication: ULCER
     Route: 048
  11. ASPIRIN [Concomitant]
  12. FENTANYL-100 [Suspect]
     Indication: INTERVERTEBRAL DISC DEGENERATION
     Dosage: CHANGE Q48HR
     Route: 062
     Dates: start: 20100101
  13. NEXIUM [Concomitant]
     Indication: GASTROOESOPHAGEAL REFLUX DISEASE
     Route: 048
  14. FENTANYL-100 [Suspect]
     Indication: PAIN
     Dosage: CHANGE Q48HR
     Route: 062
     Dates: start: 20100101
  15. METOPROLOL SUCCINATE EXTENDED-RELEASE TABLETS USP [Concomitant]
     Indication: ARRHYTHMIA
     Route: 048
  16. MAXALT [Concomitant]
     Indication: MIGRAINE
     Route: 048
  17. FENTANYL-100 [Suspect]
     Indication: OSTEOARTHRITIS
     Dosage: CHANGE Q48HR
     Route: 062
     Dates: start: 20100101
  18. HYDROCODONE W/APAP /00607101/ [Concomitant]
     Indication: PAIN
     Dosage: 7.5/500MG
     Route: 048
  19. LIPITOR [Concomitant]
     Indication: BLOOD CHOLESTEROL
     Route: 048
  20. CYTOMEL [Concomitant]
     Indication: THYROID DISORDER
     Route: 048
  21. FLUDROCORTISONE ACETATE [Concomitant]
     Indication: HYPOTENSION
     Route: 048
  22. ACID REDUCER [Concomitant]

REACTIONS (3)
  - PAIN [None]
  - DRUG WITHDRAWAL SYNDROME [None]
  - DRUG INEFFECTIVE [None]
